FAERS Safety Report 20964382 (Version 1)
Quarter: 2022Q2

REPORT INFORMATION
  Report Type: Report from Study
  Country: CA (occurrence: CA)
  Receive Date: 20220615
  Receipt Date: 20220615
  Transmission Date: 20220721
  Serious: Yes (Other)
  Sender: FDA-Public Use
  Company Number: CA-GILEAD-2022-0584874

PATIENT
  Age: 68 Year
  Sex: Female

DRUGS (8)
  1. SACITUZUMAB GOVITECAN [Suspect]
     Active Substance: SACITUZUMAB GOVITECAN
     Indication: Triple negative breast cancer
     Dosage: 440 MG
     Route: 042
     Dates: start: 20211129, end: 20220606
  2. TYLENOL [Concomitant]
     Active Substance: ACETAMINOPHEN
     Dosage: 1000 MG PO (PRE-MEDICATION PRIOR TO TRODELVY)
  3. BENADRYL [Concomitant]
     Active Substance: DIPHENHYDRAMINE HYDROCHLORIDE
     Dosage: 50 MGPO (PRE-MEDICATION PRIOR TO TRODELVY)
  4. BENADRYL [Concomitant]
     Active Substance: DIPHENHYDRAMINE HYDROCHLORIDE
     Dosage: 50 MG IV (PRE-MEDICATION PRIOR TO TRODELVY)
  5. ERIBULIN [Concomitant]
     Active Substance: ERIBULIN
  6. XELODA [Concomitant]
     Active Substance: CAPECITABINE
  7. ACETAMINOPHEN [Concomitant]
     Active Substance: ACETAMINOPHEN
     Dosage: 650 MG PO (PRE-MEDICATION PRIOR TO TRODELVY)
  8. ACETAMINOPHEN [Concomitant]
     Active Substance: ACETAMINOPHEN
     Dosage: 650 MG PO (PRE-MEDICATION PRIOR TO TRODELVY)

REACTIONS (3)
  - Disease progression [Not Recovered/Not Resolved]
  - Computerised tomogram abnormal [Unknown]
  - Weight increased [Unknown]
